FAERS Safety Report 26143469 (Version 1)
Quarter: 2025Q4

REPORT INFORMATION
  Report Type: Spontaneous
  Country: EU (occurrence: EU)
  Receive Date: 20251211
  Receipt Date: 20251211
  Transmission Date: 20260118
  Serious: Yes (Other)
  Sender: AUROBINDO
  Company Number: EU-TAKEDA-2020TUS008197

PATIENT
  Age: 74 Year
  Sex: Male

DRUGS (7)
  1. PREDNISONE [Suspect]
     Active Substance: PREDNISONE
     Indication: Anaplastic large cell lymphoma T- and null-cell types
     Dosage: UNK
     Route: 065
  2. DOXORUBICIN [Suspect]
     Active Substance: DOXORUBICIN
     Indication: Anaplastic large cell lymphoma T- and null-cell types
     Dosage: UNK
     Route: 065
  3. VINCRISTINE [Suspect]
     Active Substance: VINCRISTINE
     Indication: Anaplastic large cell lymphoma T- and null-cell types
     Dosage: UNK
     Route: 065
  4. CYCLOPHOSPHAMIDE [Suspect]
     Active Substance: CYCLOPHOSPHAMIDE
     Indication: Anaplastic large cell lymphoma T- and null-cell types
     Dosage: UNK
     Route: 065
  5. ADCETRIS [Suspect]
     Active Substance: BRENTUXIMAB VEDOTIN
     Indication: Anaplastic large cell lymphoma T- and null-cell types
     Dosage: UNK
     Route: 065
     Dates: start: 20190911, end: 20191205
  6. ETOPOSIDE [Suspect]
     Active Substance: ETOPOSIDE
     Indication: Anaplastic large cell lymphoma T- and null-cell types
     Dosage: UNK
     Route: 065
  7. GEMCITABINE [Concomitant]
     Active Substance: GEMCITABINE
     Indication: Anaplastic large cell lymphoma T- and null-cell types
     Dosage: UNK
     Route: 065
     Dates: start: 20190911, end: 20191205

REACTIONS (8)
  - Anaplastic large cell lymphoma T- and null-cell types [Not Recovered/Not Resolved]
  - C-reactive protein increased [Not Recovered/Not Resolved]
  - Pyrexia [Not Recovered/Not Resolved]
  - Lymphadenopathy [Not Recovered/Not Resolved]
  - Neoplasm progression [Not Recovered/Not Resolved]
  - Therapeutic product ineffective for unapproved indication [Unknown]
  - Off label use [Unknown]
  - Product use in unapproved indication [Unknown]

NARRATIVE: CASE EVENT DATE: 20190911
